FAERS Safety Report 4606795-6 (Version None)
Quarter: 2005Q1

REPORT INFORMATION
  Report Type: 
  Country: None (occurrence: None)
  Receive Date: 20050310
  Receipt Date: 20050225
  Transmission Date: 20050727
  Serious: Yes (Other)
  Sender: FDA-Public Use
  Company Number: 2005-BP-03449BP

PATIENT
  Age: 86 Year
  Sex: Male
  Weight: 60.8 kg

DRUGS (1)
  1. DIPYRIDAMOLE [Suspect]
     Indication: CARDIAC STRESS TEST
     Dosage: 34.1 MG (NR,STRENGTH 10MG/ML), IV
     Route: 042
     Dates: start: 20041130

REACTIONS (4)
  - ABDOMINAL PAIN UPPER [None]
  - BLOOD PRESSURE DECREASED [None]
  - PERIPHERAL COLDNESS [None]
  - PHARMACEUTICAL PRODUCT COMPLAINT [None]
